FAERS Safety Report 6140961-6 (Version None)
Quarter: 2009Q2

REPORT INFORMATION
  Report Type: 
  Country: None (occurrence: None)
  Receive Date: 20090402
  Receipt Date: 20090327
  Transmission Date: 20091009
  Serious: Yes (Hospitalization)
  Sender: FDA-Public Use
  Company Number: US-AVENTIS-200911898US

PATIENT
  Sex: Female
  Weight: 131.5 kg

DRUGS (7)
  1. LOVENOX [Suspect]
     Indication: DEEP VEIN THROMBOSIS
     Dosage: DOSE: AMT GIVEN UNCLEAR
     Dates: start: 20090301, end: 20090301
  2. LOVENOX [Suspect]
     Dates: start: 20090309
  3. TYLENOL [Concomitant]
     Dosage: DOSE: 650 MG Q6H PRN
     Route: 048
  4. SIMVASTATIN [Concomitant]
     Route: 048
  5. KEPPRA [Concomitant]
     Route: 048
  6. GABAPENTIN [Concomitant]
     Dosage: DOSE: UNK
  7. LAMICTAL [Concomitant]
     Route: 048

REACTIONS (4)
  - ACTIVATED PARTIAL THROMBOPLASTIN TIME PROLONGED [None]
  - INCORRECT DOSE ADMINISTERED [None]
  - SUICIDE ATTEMPT [None]
  - WRONG TECHNIQUE IN DRUG USAGE PROCESS [None]
